FAERS Safety Report 13477907 (Version 1)
Quarter: 2017Q2

REPORT INFORMATION
  Report Type: Spontaneous
  Country: US (occurrence: US)
  Receive Date: 20170425
  Receipt Date: 20170425
  Transmission Date: 20170830
  Serious: No
  Sender: FDA-Public Use
  Company Number: None

PATIENT
  Age: 51 Year
  Sex: Male
  Weight: 96.75 kg

DRUGS (1)
  1. REPATHA [Suspect]
     Active Substance: EVOLOCUMAB
     Indication: BLOOD CHOLESTEROL ABNORMAL
     Dosage: ?          OTHER FREQUENCY:ONCE EVERY 2 WEEKS;?
     Route: 058
     Dates: start: 20170224, end: 20170407

REACTIONS (6)
  - Muscle spasms [None]
  - Oral discomfort [None]
  - Back pain [None]
  - Chest pain [None]
  - Lip dry [None]
  - Rhinorrhoea [None]

NARRATIVE: CASE EVENT DATE: 20170226
